FAERS Safety Report 5740274-8 (Version None)
Quarter: 2008Q2

REPORT INFORMATION
  Report Type: 
  Country: None (occurrence: None)
  Receive Date: 20080516
  Receipt Date: 20080508
  Transmission Date: 20081010
  Serious: Yes (Other)
  Sender: FDA-Public Use
  Company Number: US-ASTRAZENECA-2008UW07849

PATIENT
  Age: 32 Year
  Sex: Male

DRUGS (8)
  1. SEROQUEL [Suspect]
     Indication: SCHIZOPHRENIA
     Route: 048
  2. CLOZAPINE [Concomitant]
     Dosage: 325 MG
     Route: 048
  3. DEPAKOTE [Concomitant]
  4. SYNTHROID [Concomitant]
     Dosage: .25 MG
  5. LITHIUM CARBONATE [Concomitant]
  6. ATIVAN [Concomitant]
  7. AVANDIA [Concomitant]
     Dosage: 4 MG
  8. ARTANE [Concomitant]
     Dosage: 2 MG

REACTIONS (2)
  - LEUKOPENIA [None]
  - NEUTROPENIA [None]
